FAERS Safety Report 8517655-2 (Version None)
Quarter: 2012Q3

REPORT INFORMATION
  Report Type: 
  Country: None (occurrence: None)
  Receive Date: 20120718
  Receipt Date: 20120712
  Transmission Date: 20120928
  Serious: Yes (Hospitalization)
  Sender: FDA-Public Use
  Company Number: US-JNJFOC-20120701982

PATIENT
  Sex: Female
  Weight: 34.16 kg

DRUGS (7)
  1. REMICADE [Suspect]
     Indication: COLITIS ULCERATIVE
     Route: 042
     Dates: start: 20120124
  2. ANTIBIOTICS [Concomitant]
     Indication: INFLAMMATORY BOWEL DISEASE
  3. OMEPRAZOLE [Concomitant]
  4. REMICADE [Suspect]
     Route: 042
     Dates: start: 20120522
  5. VITAMIN D [Concomitant]
  6. PREDNISONE [Concomitant]
  7. IRON [Concomitant]

REACTIONS (1)
  - ABSCESS BACTERIAL [None]
